FAERS Safety Report 18590099 (Version 1)
Quarter: 2020Q4

REPORT INFORMATION
  Report Type: Spontaneous
  Country: US (occurrence: US)
  Receive Date: 20201207
  Receipt Date: 20201207
  Transmission Date: 20210114
  Serious: No
  Sender: FDA-Public Use
  Company Number: None

PATIENT
  Sex: Female

DRUGS (1)
  1. GONAL-F RFF REDI-JECT [Suspect]
     Active Substance: FOLLITROPIN
     Indication: INFERTILITY FEMALE
     Dosage: ?          OTHER DOSE:150 UNITS ;?
     Route: 058
     Dates: start: 20200221

REACTIONS (4)
  - Therapy cessation [None]
  - Hypersensitivity [None]
  - Swollen tongue [None]
  - Paraesthesia [None]
